FAERS Safety Report 9203571 (Version 1)
Quarter: 2013Q1

REPORT INFORMATION
  Report Type: Spontaneous
  Country: US (occurrence: None)
  Receive Date: 20120709
  Receipt Date: 20120709
  Transmission Date: 20140127
  Serious: Yes (Other)
  Sender: FDA-Public Use
  Company Number: PHHY2011US69532

PATIENT
  Sex: Male

DRUGS (8)
  1. GLEEVEC [Suspect]
     Indication: CHRONIC MYELOID LEUKAEMIA
     Route: 048
  2. GLEEVEC [Suspect]
     Indication: CONVULSION
     Route: 048
  3. PHENOBARBITAL [Suspect]
     Route: 048
  4. DILANTIN [Suspect]
     Indication: CONVULSION
     Dosage: (3 IN MORNING AND 2 AT NIGHT
  5. SINGULAIR [Concomitant]
  6. ALLEGRA [Concomitant]
  7. ZYRTEC (CETIRIZINE HYDROCHLORIDE) [Concomitant]
  8. PREVACID (LANSOPRAZOLE) [Concomitant]

REACTIONS (10)
  - Drug interaction [None]
  - Swelling [None]
  - Eye swelling [None]
  - Blister [None]
  - Lethargy [None]
  - Rash [None]
  - Pruritus [None]
  - Skin exfoliation [None]
  - Skin fissures [None]
  - Skin haemorrhage [None]
